FAERS Safety Report 15614677 (Version 5)
Quarter: 2019Q1

REPORT INFORMATION
  Report Type: Spontaneous
  Country: RU (occurrence: RU)
  Receive Date: 20181113
  Receipt Date: 20190207
  Transmission Date: 20190417
  Serious: Yes (Other)
  Sender: FDA-Public Use
  Company Number: RU-BIOGEN-2018BI00658518

PATIENT
  Age: 21 Year
  Sex: Male
  Weight: 54 kg

DRUGS (1)
  1. TYSABRI [Suspect]
     Active Substance: NATALIZUMAB
     Indication: MULTIPLE SCLEROSIS
     Dosage: INFUSED OVER 1 HOUR
     Route: 065
     Dates: start: 20160816

REACTIONS (8)
  - Secondary progressive multiple sclerosis [Unknown]
  - External hydrocephalus [Unknown]
  - Upper motor neurone lesion [Unknown]
  - Off label use [Unknown]
  - Oropharyngeal pain [Unknown]
  - Pyrexia [Unknown]
  - Ataxia [Unknown]
  - Throat irritation [Unknown]

NARRATIVE: CASE EVENT DATE: 20170322
